FAERS Safety Report 8476074-8 (Version None)
Quarter: 2012Q2

REPORT INFORMATION
  Report Type: 
  Country: None (occurrence: None)
  Receive Date: 20120628
  Receipt Date: 20120615
  Transmission Date: 20120825
  Serious: Yes (Hospitalization, Other)
  Sender: FDA-Public Use
  Company Number: AU-ELI_LILLY_AND_COMPANY-AU201206002426

PATIENT
  Age: 18 Year
  Sex: Male

DRUGS (1)
  1. ZYPREXA RELPREVV [Suspect]
     Indication: SCHIZOPHRENIA
     Dosage: 300 MG, UNK

REACTIONS (5)
  - LOSS OF CONSCIOUSNESS [None]
  - HOSPITALISATION [None]
  - UNRESPONSIVE TO STIMULI [None]
  - INJECTION SITE HAEMORRHAGE [None]
  - INAPPROPRIATE AFFECT [None]
